FAERS Safety Report 8441633-5 (Version None)
Quarter: 2012Q2

REPORT INFORMATION
  Report Type: 
  Country: None (occurrence: None)
  Receive Date: 20120615
  Receipt Date: 20111017
  Transmission Date: 20120825
  Serious: No
  Sender: FDA-Public Use
  Company Number: US-NOVEN-11US003441

PATIENT
  Age: 21 Year
  Sex: Female

DRUGS (1)
  1. DAYTRANA [Suspect]
     Indication: PRODUCT USED FOR UNKNOWN INDICATION
     Dosage: 20 MG, UNK
     Route: 062

REACTIONS (3)
  - NO ADVERSE EVENT [None]
  - DRUG PRESCRIBING ERROR [None]
  - OFF LABEL USE [None]
